FAERS Safety Report 8548285-4 (Version None)
Quarter: 2012Q3

REPORT INFORMATION
  Report Type: 
  Country: None (occurrence: None)
  Receive Date: 20120719
  Receipt Date: 20120719
  Transmission Date: 20120928
  Serious: Yes (Other)
  Sender: FDA-Public Use
  Company Number: None

PATIENT
  Age: 39 Year
  Sex: Male
  Weight: 83.9154 kg

DRUGS (1)
  1. LEVETIRACETAM [Suspect]
     Indication: EPILEPSY
     Dosage: 3 - 500 TABS 3 MORNING 7 DAYS ; 3 - 500 TABS 3 NIGHT WEEK

REACTIONS (3)
  - PRODUCT SOLUBILITY ABNORMAL [None]
  - PRODUCT COATING ISSUE [None]
  - MEDICATION RESIDUE [None]
